FAERS Safety Report 23948342 (Version 2)
Quarter: 2024Q3

REPORT INFORMATION
  Report Type: Report from Study
  Country: BR (occurrence: BR)
  Receive Date: 20240607
  Receipt Date: 20240704
  Transmission Date: 20241016
  Serious: No
  Sender: UCB
  Company Number: BR-UCBSA-2024027734

PATIENT
  Sex: Male

DRUGS (2)
  1. ROTIGOTINE [Suspect]
     Active Substance: ROTIGOTINE
     Indication: Parkinson^s disease
     Dosage: UNK, ONCE DAILY (QD)
     Route: 062
     Dates: start: 202404, end: 202405
  2. BENSERAZIDE\LEVODOPA [Concomitant]
     Active Substance: BENSERAZIDE\LEVODOPA
     Indication: Product used for unknown indication
     Dosage: 100/25 MG, 2X/DAY (BID)

REACTIONS (2)
  - Therapy interrupted [Unknown]
  - Product adhesion issue [Unknown]

NARRATIVE: CASE EVENT DATE: 20240101
